FAERS Safety Report 6476657-0 (Version None)
Quarter: 2009Q4

REPORT INFORMATION
  Report Type: 
  Country: None (occurrence: None)
  Receive Date: 20091204
  Receipt Date: 20091204
  Transmission Date: 20100525
  Serious: No
  Sender: FDA-Public Use
  Company Number: None

PATIENT
  Age: 59 Year
  Sex: Male
  Weight: 88.4514 kg

DRUGS (1)
  1. ZICAM MATRIXX INITIATIVES [Suspect]
     Indication: NASOPHARYNGITIS
     Dosage: ONE SQUIRT EACH NOSTRIL DAILY NASAL
     Route: 045
     Dates: start: 20030101, end: 20080101

REACTIONS (2)
  - HYPOGEUSIA [None]
  - HYPOSMIA [None]
